FAERS Safety Report 8459375-9 (Version None)
Quarter: 2012Q2

REPORT INFORMATION
  Report Type: 
  Country: None (occurrence: None)
  Receive Date: 20120622
  Receipt Date: 20120614
  Transmission Date: 20120825
  Serious: Yes (Other)
  Sender: FDA-Public Use
  Company Number: DE-JNJFOC-20120608916

PATIENT
  Sex: Female

DRUGS (2)
  1. XARELTO [Suspect]
     Indication: THROMBOSIS
     Route: 065
  2. XARELTO [Suspect]
     Indication: EMBOLISM VENOUS
     Route: 065

REACTIONS (1)
  - ISCHAEMIC STROKE [None]
